FAERS Safety Report 15963946 (Version 1)
Quarter: 2019Q1

REPORT INFORMATION
  Report Type: Spontaneous
  Country: US (occurrence: US)
  Receive Date: 20190214
  Receipt Date: 20190214
  Transmission Date: 20190417
  Serious: Yes (Hospitalization)
  Sender: FDA-Public Use
  Company Number: US-BAUSCH-BL-2019-003788

PATIENT
  Age: 47 Year
  Sex: Female
  Weight: 58.57 kg

DRUGS (7)
  1. TRAZODONE [Concomitant]
     Active Substance: TRAZODONE HYDROCHLORIDE
     Indication: SLEEP DISORDER
     Dosage: STARTED TWO YEARS AGO, DAILY AT BEDTIME THEY GIVE HER 50MG
     Dates: start: 2017
  2. VENLAFAXINE HYDROCHLORIDE EXTENDED-RELEASE [Suspect]
     Active Substance: VENLAFAXINE HYDROCHLORIDE
     Indication: MENTAL DISORDER
     Dosage: THREE 75MG CAPSULES EVERY MORNING
     Route: 048
  3. VENLAFAXINE HYDROCHLORIDE EXTENDED-RELEASE [Suspect]
     Active Substance: VENLAFAXINE HYDROCHLORIDE
     Dosage: DOSE TAPERED TO (DOWN TO) 112.5MG,  TOOK THAT FOR TWO WEEKS
     Route: 048
     Dates: start: 20171025
  4. VENLAFAXINE HYDROCHLORIDE EXTENDED-RELEASE [Suspect]
     Active Substance: VENLAFAXINE HYDROCHLORIDE
     Dosage: DOSE DECREASED DOWN TO 75MG FOR TWO WEEKS
     Route: 048
     Dates: start: 20171108
  5. VENLAFAXINE HYDROCHLORIDE EXTENDED-RELEASE [Suspect]
     Active Substance: VENLAFAXINE HYDROCHLORIDE
     Dosage: DOSE TAPERED TO 150MG
     Route: 048
     Dates: start: 20171024
  6. VENLAFAXINE HYDROCHLORIDE EXTENDED-RELEASE [Suspect]
     Active Substance: VENLAFAXINE HYDROCHLORIDE
     Dosage: DOSE DECREASED TO 37.5 FOR 2 WEEKS.
     Route: 048
  7. CLONAZEPAM. [Concomitant]
     Active Substance: CLONAZEPAM
     Indication: SLEEP DISORDER
     Dosage: TAKEN OFF AND ON SINCE 2006, DAILY AT BEDTIME
     Dates: start: 2006

REACTIONS (17)
  - Stress [Unknown]
  - Asthenia [Recovering/Resolving]
  - White blood cell count decreased [Unknown]
  - White blood cell count increased [Unknown]
  - Gastrointestinal inflammation [Unknown]
  - Palpitations [Unknown]
  - Withdrawal syndrome [Unknown]
  - Pain [Unknown]
  - Tremor [Unknown]
  - Nervousness [Recovering/Resolving]
  - Feeling abnormal [Unknown]
  - Intestinal mass [Unknown]
  - Drug ineffective for unapproved indication [Not Recovered/Not Resolved]
  - Drug tolerance [Unknown]
  - Anxiety [Not Recovered/Not Resolved]
  - Crying [Recovering/Resolving]
  - Rhinorrhoea [Not Recovered/Not Resolved]

NARRATIVE: CASE EVENT DATE: 201702
